FAERS Safety Report 10543438 (Version 6)
Quarter: 2015Q1

REPORT INFORMATION
  Report Type: Spontaneous
  Country: US (occurrence: None)
  Receive Date: 20141023
  Receipt Date: 20150227
  Transmission Date: 20150720
  Serious: Yes (Hospitalization)
  Sender: FDA-Public Use
  Company Number: US-DEXPHARM-20140642

PATIENT
  Sex: Male
  Weight: 81.63 kg

DRUGS (7)
  1. LIPITOR [Concomitant]
     Active Substance: ATORVASTATIN CALCIUM
  2. ASPIRIN. [Concomitant]
     Active Substance: ASPIRIN
  3. VITAMIN D [Concomitant]
     Active Substance: CHOLECALCIFEROL
  4. LISINOPRIL. [Suspect]
     Active Substance: LISINOPRIL
     Indication: HYPERTENSION
     Route: 048
     Dates: start: 20140401
  5. HYDROCHLOROTHIAZIDE. [Concomitant]
     Active Substance: HYDROCHLOROTHIAZIDE
  6. BAYER ASPIRIN [Concomitant]
     Active Substance: ASPIRIN
  7. OMEPRAZOLE DELAYED RELEASE [Suspect]
     Active Substance: OMEPRAZOLE
     Indication: NON-CARDIAC CHEST PAIN
     Dosage: 20 MG ONCE DAY, ORAL?
     Route: 048
     Dates: start: 20140319, end: 20140401

REACTIONS (21)
  - Fatigue [None]
  - Weight decreased [None]
  - Acute kidney injury [None]
  - Urinary tract infection [None]
  - Stress [None]
  - Red blood cell count decreased [None]
  - Pulmonary hypertension [None]
  - Ventricular tachycardia [None]
  - Metabolic acidosis [None]
  - Tubulointerstitial nephritis [None]
  - Diarrhoea [None]
  - Drug hypersensitivity [None]
  - Nephrogenic anaemia [None]
  - Blood sodium decreased [None]
  - Dyspnoea [None]
  - Asthenia [None]
  - Haematocrit decreased [None]
  - Dizziness [None]
  - Renal failure [None]
  - Haemoglobin decreased [None]
  - Electrocardiogram ST segment depression [None]

NARRATIVE: CASE EVENT DATE: 2014
